FAERS Safety Report 5676244-8 (Version None)
Quarter: 2008Q1

REPORT INFORMATION
  Report Type: 
  Country: None (occurrence: None)
  Receive Date: 20080321
  Receipt Date: 20080310
  Transmission Date: 20080703
  Serious: Yes (Other)
  Sender: FDA-Public Use
  Company Number: CA-PFIZER INC-2008006740

PATIENT
  Sex: Female
  Weight: 54.4 kg

DRUGS (7)
  1. CHAMPIX [Suspect]
     Indication: SMOKING CESSATION THERAPY
     Route: 048
     Dates: start: 20080101, end: 20080101
  2. FACTIVE [Suspect]
     Indication: BRONCHITIS
     Route: 048
     Dates: start: 20080109, end: 20080114
  3. ALL OTHER THERAPEUTIC PRODUCTS [Concomitant]
  4. AZITHROMYCIN [Concomitant]
  5. BENADRYL [Concomitant]
  6. PREDNISONE TAB [Concomitant]
  7. REACTINE [Concomitant]

REACTIONS (4)
  - ANAPHYLACTIC REACTION [None]
  - DYSPNOEA [None]
  - OEDEMA [None]
  - RASH [None]
